FAERS Safety Report 5301984-X (Version None)
Quarter: 2007Q2

REPORT INFORMATION
  Report Type: 
  Country: None (occurrence: None)
  Receive Date: 20070419
  Receipt Date: 20070411
  Transmission Date: 20071010
  Serious: Yes (Other)
  Sender: FDA-Public Use
  Company Number: US-AVENTIS-200712611US

PATIENT
  Sex: Female

DRUGS (1)
  1. NASACORT AQ [Suspect]
     Dosage: DOSE: UNK

REACTIONS (1)
  - CATARACT [None]
